FAERS Safety Report 5470204-8 (Version None)
Quarter: 2007Q3

REPORT INFORMATION
  Report Type: 
  Country: None (occurrence: None)
  Receive Date: 20070924
  Receipt Date: 20070911
  Transmission Date: 20080115
  Serious: Yes (Hospitalization, Other)
  Sender: FDA-Public Use
  Company Number: 2007EN000223

PATIENT
  Age: 49 Year
  Sex: Female
  Weight: 90.7194 kg

DRUGS (9)
  1. OPANA ER [Suspect]
     Indication: FIBROMYALGIA
     Dosage: 120 MG; BID
     Dates: start: 20060601
  2. HYDROMORPHONE HCL [Concomitant]
  3. TRAZODONE HCL [Concomitant]
  4. CYMBALTA [Concomitant]
  5. ZANAFLEX [Concomitant]
  6. PREVACID [Concomitant]
  7. SYNTHROID [Concomitant]
  8. IMITREX [Concomitant]
  9. ASPIRIN [Concomitant]

REACTIONS (3)
  - CARDIAC FAILURE CONGESTIVE [None]
  - TRANSIENT ISCHAEMIC ATTACK [None]
  - WEIGHT INCREASED [None]
